FAERS Safety Report 4965609-5 (Version None)
Quarter: 2006Q1

REPORT INFORMATION
  Report Type: 
  Country: None (occurrence: None)
  Receive Date: 20060201
  Receipt Date: 20051003
  Transmission Date: 20060701
  Serious: No
  Sender: FDA-Public Use
  Company Number: 2005PV002803

PATIENT
  Age: 54 Year
  Sex: Female
  Weight: 117.028 kg

DRUGS (5)
  1. BYETTA [Suspect]
     Indication: DIABETES MELLITUS NON-INSULIN-DEPENDENT
     Dosage: SEE IMAGE
     Route: 058
     Dates: end: 20051001
  2. BYETTA [Suspect]
     Indication: DIABETES MELLITUS NON-INSULIN-DEPENDENT
     Dosage: SEE IMAGE
     Route: 058
     Dates: start: 20051002
  3. METFORMIN [Concomitant]
  4. ZYRTEC [Concomitant]
  5. ALLERGY MEDICATION [Concomitant]

REACTIONS (6)
  - DYSPEPSIA [None]
  - FATIGUE [None]
  - HYPERCHLORHYDRIA [None]
  - PRURITUS [None]
  - VOMITING [None]
  - WEIGHT DECREASED [None]
